FAERS Safety Report 12761141 (Version 1)
Quarter: 2016Q3

REPORT INFORMATION
  Report Type: Spontaneous
  Country: US (occurrence: US)
  Receive Date: 20160920
  Receipt Date: 20160920
  Transmission Date: 20161109
  Serious: No
  Sender: FDA-Public Use
  Company Number: US-STRIDES ARCOLAB LIMITED-2015SP001069

PATIENT

DRUGS (2)
  1. NEURONTIN [Concomitant]
     Active Substance: GABAPENTIN
     Indication: PAIN
     Dosage: 300 MG, UNK
     Route: 048
  2. ERGOCALCIFEROL CAPSULES, USP 1.25MG [Suspect]
     Active Substance: ERGOCALCIFEROL
     Indication: ARTHRITIS
     Dosage: 1.25 MG/ 50,000IU, ONCE A WEEK
     Route: 048
     Dates: start: 20150731

REACTIONS (2)
  - Pruritus [Not Recovered/Not Resolved]
  - Paraesthesia [Not Recovered/Not Resolved]

NARRATIVE: CASE EVENT DATE: 20150731
